FAERS Safety Report 8376996-2 (Version None)
Quarter: 2012Q2

REPORT INFORMATION
  Report Type: 
  Country: None (occurrence: None)
  Receive Date: 20120521
  Receipt Date: 20120510
  Transmission Date: 20120825
  Serious: Yes (Hospitalization)
  Sender: FDA-Public Use
  Company Number: 2012AL000047

PATIENT
  Age: 75 Year
  Sex: Male

DRUGS (1)
  1. FOLOTYN [Suspect]
     Indication: MYCOSIS FUNGOIDES
     Dosage: 15 MG/M**2;QW;IV
     Route: 042
     Dates: start: 20120221

REACTIONS (2)
  - VIRAL INFECTION [None]
  - PNEUMONITIS [None]
